FAERS Safety Report 5070431-8 (Version None)
Quarter: 2006Q3

REPORT INFORMATION
  Report Type: 
  Country: None (occurrence: None)
  Receive Date: 20060714
  Receipt Date: 20060415
  Transmission Date: 20061208
  Serious: No
  Sender: FDA-Public Use
  Company Number: 2006SP001712

PATIENT
  Age: 55 Year
  Sex: Female
  Weight: 65.7716 kg

DRUGS (4)
  1. LUNESTA [Suspect]
     Indication: SOMNOLENCE
     Dosage: 3 MG;1X;ORAL
     Route: 048
     Dates: start: 20060414, end: 20060414
  2. TOPAMAX [Concomitant]
  3. SUMATRIPTAN SUCCINATE [Concomitant]
  4. ZOLOFT [Concomitant]

REACTIONS (1)
  - DYSGEUSIA [None]
